FAERS Safety Report 8962432 (Version 1)
Quarter: 2012Q4

REPORT INFORMATION
  Report Type: Report from Study
  Country: US (occurrence: US)
  Receive Date: 20121213
  Receipt Date: 20121213
  Transmission Date: 20130627
  Serious: Yes (Hospitalization)
  Sender: FDA-Public Use
  Company Number: US-BRISTOL-MYERS SQUIBB COMPANY-17172909

PATIENT
  Sex: Male

DRUGS (2)
  1. IPILIMUMAB [Suspect]
     Indication: MALIGNANT MELANOMA
     Dates: start: 20101026
  2. TEMODAR [Suspect]
     Indication: MALIGNANT MELANOMA
     Dosage: daily x 4 days
     Dates: start: 20101026, end: 20101029

REACTIONS (1)
  - Dehydration [Unknown]
